FAERS Safety Report 6263373-3 (Version None)
Quarter: 2009Q3

REPORT INFORMATION
  Report Type: 
  Country: None (occurrence: None)
  Receive Date: 20090710
  Receipt Date: 20080903
  Transmission Date: 20100115
  Serious: No
  Sender: FDA-Public Use
  Company Number: A0743967A

PATIENT
  Age: 67 Year
  Sex: Female

DRUGS (12)
  1. FLOVENT [Suspect]
     Indication: ASTHMA
     Dosage: 2PUFF TWICE PER DAY
     Route: 055
     Dates: start: 20080707, end: 20080811
  2. CELEBREX [Concomitant]
  3. NEXIUM [Concomitant]
  4. CRESTOR [Concomitant]
  5. PREMARIN [Concomitant]
  6. BENICAR [Concomitant]
  7. CLARITIN [Concomitant]
  8. CARDIZEM [Concomitant]
  9. ZOLOFT [Concomitant]
  10. ATIVAN [Concomitant]
  11. AMBIEN [Concomitant]
  12. ULTRACET [Concomitant]

REACTIONS (3)
  - ANXIETY [None]
  - HYPERSENSITIVITY [None]
  - PRURITUS [None]
